FAERS Safety Report 7423272-8 (Version None)
Quarter: 2011Q2

REPORT INFORMATION
  Report Type: 
  Country: None (occurrence: None)
  Receive Date: 20110419
  Receipt Date: 20110412
  Transmission Date: 20111010
  Serious: Yes (Hospitalization)
  Sender: FDA-Public Use
  Company Number: US-ROCHE-764277

PATIENT
  Sex: Female

DRUGS (5)
  1. PEGINTERFERON ALFA-2A [Suspect]
     Indication: HEPATITIS C
     Dosage: FORM: PRE-FILLED SYRINGE
     Route: 058
     Dates: start: 20110121, end: 20110201
  2. RIBASPHERE [Suspect]
     Route: 048
     Dates: start: 20110307
  3. PEGINTERFERON ALFA-2A [Suspect]
     Route: 058
  4. RIBASPHERE [Suspect]
     Indication: HEPATITIS C
     Dosage: DIVIDED DOSES
     Route: 048
     Dates: start: 20110121, end: 20110201
  5. RIBASPHERE [Suspect]
     Dosage: DIVIDED DOSES.
     Route: 048
     Dates: start: 20110401

REACTIONS (6)
  - NAUSEA [None]
  - INTERVERTEBRAL DISC PROTRUSION [None]
  - MUSCULOSKELETAL DISORDER [None]
  - HAEMATEMESIS [None]
  - WEIGHT DECREASED [None]
  - ULCER HAEMORRHAGE [None]
